FAERS Safety Report 9838764 (Version 1)
Quarter: 2014Q1

REPORT INFORMATION
  Report Type: Spontaneous
  Country: US (occurrence: None)
  Receive Date: 20140117
  Receipt Date: 20140117
  Transmission Date: 20141002
  Serious: Yes (Life-Threatening)
  Sender: FDA-Public Use
  Company Number: None

PATIENT
  Age: 45 Year
  Sex: Female
  Weight: 97 kg

DRUGS (21)
  1. SEROQUEL [Suspect]
     Indication: AGITATION
     Dosage: 1 TAB  BID  ORAL
     Route: 048
     Dates: start: 20140109, end: 20140113
  2. SEROQUEL [Suspect]
     Indication: WEANING FAILURE
     Dosage: 1 TAB  BID  ORAL
     Route: 048
     Dates: start: 20140109, end: 20140113
  3. TYLENOL [Concomitant]
  4. ALBUMIN [Concomitant]
  5. DUONEB [Concomitant]
  6. AMIODARONE [Concomitant]
  7. ASA [Concomitant]
  8. COREG [Concomitant]
  9. PLAVIX [Concomitant]
  10. DANTROLENE [Concomitant]
  11. FENTANYL [Concomitant]
  12. LASIX [Concomitant]
  13. HEPARIN [Concomitant]
  14. LEVEMIR [Concomitant]
  15. HUMALOG [Concomitant]
  16. LEVAQUIN [Concomitant]
  17. ATIVAN [Concomitant]
  18. MERREM [Concomitant]
  19. MORPHINE [Concomitant]
  20. PROTONIX [Concomitant]
  21. PROPOFOL [Concomitant]

REACTIONS (4)
  - Pyrexia [None]
  - Renal failure [None]
  - Mental status changes [None]
  - Respiratory failure [None]
